FAERS Safety Report 19485785 (Version 1)
Quarter: 2021Q3

REPORT INFORMATION
  Report Type: Report from Study
  Country: BR (occurrence: BR)
  Receive Date: 20210702
  Receipt Date: 20210702
  Transmission Date: 20211014
  Serious: Yes (Other)
  Sender: FDA-Public Use
  Company Number: BR-GLAXOSMITHKLINE-BR2021GSK141726

PATIENT

DRUGS (1)
  1. DOSTARLIMAB [Suspect]
     Active Substance: DOSTARLIMAB
     Indication: ENDOMETRIAL NEOPLASM
     Dosage: 4 CYCLES OF OF 500 MG Q3W FOLLOWED BY 1000MG Q6W FOR ALL SUBSEQUENT CYCLES
     Route: 042

REACTIONS (2)
  - Respiratory failure [Unknown]
  - COVID-19 [Unknown]
